FAERS Safety Report 7157844-5 (Version None)
Quarter: 2010Q4

REPORT INFORMATION
  Report Type: 
  Country: None (occurrence: None)
  Receive Date: 20101214
  Receipt Date: 20101007
  Transmission Date: 20110411
  Serious: No
  Sender: FDA-Public Use
  Company Number: A0885401A

PATIENT
  Age: 66 Year
  Sex: Female

DRUGS (1)
  1. NICORETTE (MINT) [Suspect]
     Indication: SMOKING CESSATION THERAPY
     Dates: start: 20100728

REACTIONS (1)
  - DRUG ADMINISTRATION ERROR [None]
